FAERS Safety Report 8590332-8 (Version None)
Quarter: 2012Q3

REPORT INFORMATION
  Report Type: 
  Country: None (occurrence: None)
  Receive Date: 20120813
  Receipt Date: 20120806
  Transmission Date: 20120928
  Serious: Yes (Other)
  Sender: FDA-Public Use
  Company Number: US-JNJFOC-20120804525

PATIENT
  Sex: Female
  Weight: 90.72 kg

DRUGS (2)
  1. VICODIN [Concomitant]
     Indication: BREAKTHROUGH PAIN
     Dosage: 5/500 MG
     Route: 048
  2. FENTANYL-100 [Suspect]
     Indication: OSTEOARTHRITIS
     Route: 062
     Dates: start: 20120101

REACTIONS (4)
  - NEUROPATHY PERIPHERAL [None]
  - PRODUCT QUALITY ISSUE [None]
  - PRODUCT ADHESION ISSUE [None]
  - INCORRECT DRUG ADMINISTRATION DURATION [None]
